FAERS Safety Report 21659065 (Version 1)
Quarter: 2022Q4

REPORT INFORMATION
  Report Type: Spontaneous
  Country: US (occurrence: US)
  Receive Date: 20221129
  Receipt Date: 20221129
  Transmission Date: 20230112
  Serious: Yes (Other)
  Sender: FDA-Public Use
  Company Number: US-BRISTOL-MYERS SQUIBB COMPANY-2022-142529

PATIENT
  Age: 64 Year
  Sex: Male

DRUGS (4)
  1. DASATINIB [Suspect]
     Active Substance: DASATINIB
     Indication: Chronic myeloid leukaemia
     Route: 065
  2. DASATINIB [Suspect]
     Active Substance: DASATINIB
     Route: 048
  3. DASATINIB [Suspect]
     Active Substance: DASATINIB
     Route: 048
  4. DASATINIB [Suspect]
     Active Substance: DASATINIB
     Route: 048

REACTIONS (1)
  - Pancytopenia [Recovering/Resolving]
